FAERS Safety Report 9219416 (Version 2)
Quarter: 2013Q2

REPORT INFORMATION
  Report Type: Spontaneous
  Country: US (occurrence: US)
  Receive Date: 20130409
  Receipt Date: 20130425
  Transmission Date: 20140414
  Serious: No
  Sender: FDA-Public Use
  Company Number: US-PFIZER INC-2013108561

PATIENT
  Age: 50 Year
  Sex: Female
  Weight: 95.24 kg

DRUGS (7)
  1. NEURONTIN [Suspect]
     Indication: NEUROPATHY PERIPHERAL
     Dosage: 1200 MG, 5X/DAY
     Dates: start: 2010, end: 2010
  2. LYRICA [Suspect]
     Indication: NEUROPATHY PERIPHERAL
     Dosage: 225 MG, 2X/DAY
     Dates: start: 2010
  3. CYMBALTA [Suspect]
     Indication: NEUROPATHY PERIPHERAL
     Dosage: 60 MG, 1X/DAY
  4. LORTAB [Suspect]
     Indication: NEUROPATHY PERIPHERAL
     Dosage: 10/500 MG, 3X/DAY
  5. LORTAB [Suspect]
     Dosage: 10/500 MG, 4X/DAY
  6. LANTUS [Concomitant]
     Indication: DIABETES MELLITUS
     Dosage: 65 IU IN MORNING AND 85 IU IN EVENING
  7. JANUVIA [Concomitant]
     Indication: DIABETES MELLITUS
     Dosage: 50 MG, 1X/DAY

REACTIONS (3)
  - Drug ineffective [Unknown]
  - Pain [Unknown]
  - Off label use [Unknown]
